FAERS Safety Report 14246274 (Version 3)
Quarter: 2018Q1

REPORT INFORMATION
  Report Type: Spontaneous
  Country: FR (occurrence: FR)
  Receive Date: 20171204
  Receipt Date: 20180307
  Transmission Date: 20180508
  Serious: Yes (Other)
  Sender: FDA-Public Use
  Company Number: FR-MERCK KGAA-2036550

PATIENT
  Age: 61 Year
  Sex: Female
  Weight: 80 kg

DRUGS (1)
  1. NOVOTHYROX [Suspect]
     Active Substance: LEVOTHYROXINE SODIUM
     Indication: HYPOTHYROIDISM
     Route: 048
     Dates: start: 20170523, end: 20170927

REACTIONS (13)
  - Muscle spasms [Recovered/Resolved]
  - Urine odour abnormal [Recovered/Resolved]
  - Fatigue [Not Recovered/Not Resolved]
  - Gastrointestinal motility disorder [Recovered/Resolved]
  - Blood thyroid stimulating hormone increased [Unknown]
  - Headache [Not Recovered/Not Resolved]
  - Visual impairment [Recovered/Resolved]
  - Hypoacusis [Not Recovered/Not Resolved]
  - Memory impairment [Recovered/Resolved]
  - Insomnia [Recovered/Resolved]
  - Poor quality sleep [Not Recovered/Not Resolved]
  - Hypertension [Unknown]
  - Blood thyroid stimulating hormone increased [Unknown]

NARRATIVE: CASE EVENT DATE: 20170605
